FAERS Safety Report 7357617-4 (Version None)
Quarter: 2011Q1

REPORT INFORMATION
  Report Type: 
  Country: None (occurrence: None)
  Receive Date: 20110309
  Receipt Date: 20110221
  Transmission Date: 20110831
  Serious: Yes (Death, Life-Threatening, Hospitalization, Other)
  Sender: FDA-Public Use
  Company Number: FK201100234

PATIENT
  Age: 66 Year
  Sex: Female

DRUGS (7)
  1. VANCOMYCIN [Suspect]
     Indication: ANTIBIOTIC THERAPY
     Dosage: 1 GM AT THE HOSPITAL ADDMISSION; INTRAVENOUS (NOT OTHERWISE SPECIFIED; 1 GM, 2ND HOSPITAL ADMISSION,
     Route: 042
  2. ERTAPENEM [Concomitant]
  3. TAZOCIN (PIP/TAZO) [Concomitant]
  4. DAPTOMYCIN [Concomitant]
  5. CEFEPIME [Concomitant]
  6. VANCOMYCIN [Suspect]
     Indication: ANTIBIOTIC THERAPY
     Dosage: 1 GM, AT 2ND HOSPITAL ADMISSION, INTRAPERITONEAL
     Route: 033
  7. CEFEPIME [Concomitant]

REACTIONS (3)
  - SEPTIC SHOCK [None]
  - ENTEROCOCCAL INFECTION [None]
  - PERITONITIS [None]
